FAERS Safety Report 8025739 (Version 4)
Quarter: 2012Q4

REPORT INFORMATION
  Report Type: 
  Country: NL (occurrence: NL)
  Receive Date: 20110708
  Receipt Date: 20121213
  Transmission Date: 20130627
  Serious: Yes (Hospitalization)
  Sender: FDA-Public Use
  Company Number: NL-BIOGENIDEC-2011BI023986

PATIENT
  Age: 45 Year
  Sex: Female

DRUGS (3)
  1. AVONEX [Suspect]
     Indication: MULTIPLE SCLEROSIS
     Route: 030
     Dates: end: 20120905
  2. AVONEX [Suspect]
     Indication: MULTIPLE SCLEROSIS
     Route: 030
     Dates: start: 20120905
  3. HYDROCORTISONEACETAAT/LIDOCAINE VASELINE OINTMENT [Concomitant]
     Indication: LOCAL ANAESTHESIA

REACTIONS (2)
  - Skin fissures [Unknown]
  - Lipoatrophy [Unknown]
